FAERS Safety Report 11547152 (Version 2)
Quarter: 2015Q4

REPORT INFORMATION
  Report Type: Report from Study
  Country: BR (occurrence: BR)
  Receive Date: 20150924
  Receipt Date: 20151013
  Transmission Date: 20160304
  Serious: Yes (Hospitalization, Other)
  Sender: FDA-Public Use
  Company Number: PHHY2015BR113421

PATIENT
  Sex: Female

DRUGS (5)
  1. FORASEQ [Suspect]
     Active Substance: BUDESONIDE\FORMOTEROL FUMARATE
     Indication: BRONCHITIS
     Dosage: 2 DF, QD
     Route: 055
  2. OMEPRAZEN//OMEPRAZOLE [Concomitant]
     Indication: ABDOMINAL DISCOMFORT
     Dosage: 1 DF, QD
     Route: 048
  3. BALCOR [Concomitant]
     Indication: CARDIAC DISORDER
     Dosage: 2 DF, QD
     Route: 048
  4. ALAP//ALPRAZOLAM [Concomitant]
     Indication: INSOMNIA
     Dosage: 2 DF, QD
     Route: 048
  5. FORASEQ [Suspect]
     Active Substance: BUDESONIDE\FORMOTEROL FUMARATE
     Indication: ASTHMA

REACTIONS (10)
  - Weight increased [Unknown]
  - Asthenia [Unknown]
  - Abasia [Recovering/Resolving]
  - Disorientation [Unknown]
  - Pain [Recovering/Resolving]
  - Post procedural complication [Unknown]
  - Kidney infection [Recovered/Resolved]
  - Gastrointestinal disorder [Unknown]
  - Muscular weakness [Not Recovered/Not Resolved]
  - Product quality issue [Unknown]
